FAERS Safety Report 9454287 (Version 1)
Quarter: 2013Q3

REPORT INFORMATION
  Report Type: Spontaneous
  Country: JP (occurrence: JP)
  Receive Date: 20130812
  Receipt Date: 20130812
  Transmission Date: 20140515
  Serious: Yes (Other)
  Sender: FDA-Public Use
  Company Number: JP-PFIZER INC-2013230570

PATIENT
  Age: 65 Year
  Sex: Female

DRUGS (1)
  1. CARDENALIN [Suspect]
     Indication: BLOOD PRESSURE MANAGEMENT
     Dosage: UNK
     Route: 048

REACTIONS (1)
  - Pancytopenia [Unknown]
